FAERS Safety Report 8504644-7 (Version None)
Quarter: 2012Q3

REPORT INFORMATION
  Report Type: 
  Country: None (occurrence: None)
  Receive Date: 20120711
  Receipt Date: 20120704
  Transmission Date: 20120928
  Serious: Yes (Hospitalization)
  Sender: FDA-Public Use
  Company Number: DE-ROCHE-1086025

PATIENT
  Age: 87 Year
  Sex: Female

DRUGS (7)
  1. METOPROLOL TARTRATE [Concomitant]
  2. RANIBIZUMAB [Suspect]
     Route: 050
     Dates: start: 20120416
  3. RANIBIZUMAB [Suspect]
     Route: 050
     Dates: start: 20120514, end: 20120514
  4. RANIBIZUMAB [Suspect]
     Indication: AGE-RELATED MACULAR DEGENERATION
     Route: 050
     Dates: start: 20120319
  5. DIGITOXIN TAB [Concomitant]
  6. SIMVASTATIN [Concomitant]
  7. LOSARTAN POTASSIUM [Concomitant]

REACTIONS (1)
  - CEREBROVASCULAR ACCIDENT [None]
